FAERS Safety Report 8175042-3 (Version None)
Quarter: 2012Q1

REPORT INFORMATION
  Report Type: 
  Country: None (occurrence: None)
  Receive Date: 20120229
  Receipt Date: 20120221
  Transmission Date: 20120608
  Serious: Yes (Other)
  Sender: FDA-Public Use
  Company Number: PHHY2012US014965

PATIENT
  Age: 54 Year
  Sex: Female

DRUGS (2)
  1. NALTREXONE HYDROCHLORIDE [Suspect]
     Indication: KLEPTOMANIA
     Dosage: 50 MG, UNK
  2. VENLAFAXINE [Concomitant]
     Dosage: 225 MG, UNK

REACTIONS (4)
  - SOMNOLENCE [None]
  - SEDATION [None]
  - COGNITIVE DISORDER [None]
  - DRUG INTOLERANCE [None]
